FAERS Safety Report 24669166 (Version 1)
Quarter: 2024Q4

REPORT INFORMATION
  Report Type: Spontaneous
  Country: US (occurrence: US)
  Receive Date: 20241127
  Receipt Date: 20241127
  Transmission Date: 20250114
  Serious: Yes (Other)
  Sender: STRIDES
  Company Number: US-STRIDES ARCOLAB LIMITED-2024SP015239

PATIENT
  Age: 73 Year
  Sex: Female

DRUGS (7)
  1. LETROZOLE [Suspect]
     Active Substance: LETROZOLE
     Indication: Endometrial cancer stage IV
     Dosage: UNK, CYCLICAL (RECEIVED 3 CYCLES)
     Route: 065
  2. CARBOPLATIN [Suspect]
     Active Substance: CARBOPLATIN
     Indication: Endometrial cancer stage IV
     Dosage: UNK, CYCLICAL (RECEIVED 6 CYCLES)
     Route: 065
  3. PACLITAXEL [Suspect]
     Active Substance: PACLITAXEL
     Indication: Endometrial cancer stage IV
     Dosage: UNK, CYCLICAL (RECEIVED 6 CYCLES)
     Route: 065
  4. PEMBROLIZUMAB [Suspect]
     Active Substance: PEMBROLIZUMAB
     Indication: Endometrial cancer stage IV
     Dosage: UNK, CYCLICAL (RECEIVED 3 CYCLES; MONOTHERAPY)
     Route: 065
  5. PEMBROLIZUMAB [Suspect]
     Active Substance: PEMBROLIZUMAB
     Dosage: UNK, CYCLICAL (COMPLETED 22 CYCLES)
     Route: 065
     Dates: start: 20220711
  6. LENVIMA [Suspect]
     Active Substance: LENVATINIB
     Indication: Endometrial cancer stage IV
     Dosage: 10 MILLIGRAM, QD (8 CYCLES IN COMBINATION WITH PEMBROLIZUMAB)
     Route: 065
     Dates: start: 20220711, end: 2022
  7. LENVIMA [Suspect]
     Active Substance: LENVATINIB
     Dosage: 4 MILLIGRAM, QD (IN COMBINATION WITH PEMBROLIZUMAB)
     Route: 065
     Dates: start: 20221108

REACTIONS (3)
  - Malignant neoplasm progression [Recovered/Resolved]
  - Drug ineffective for unapproved indication [Unknown]
  - Hypertension [Unknown]
